FAERS Safety Report 6326710-7 (Version None)
Quarter: 2009Q3

REPORT INFORMATION
  Report Type: 
  Country: None (occurrence: None)
  Receive Date: 20090825
  Receipt Date: 20090813
  Transmission Date: 20100115
  Serious: Yes (Other)
  Sender: FDA-Public Use
  Company Number: PHBS2008CA03898

PATIENT
  Age: 56 Year
  Sex: Female

DRUGS (14)
  1. PAMIDRONATE DISODIUM [Suspect]
     Indication: OSTEOPOROSIS
  2. ZOLEDRONIC ACID [Suspect]
     Indication: OSTEOPOROSIS
     Dosage: UNK
     Dates: start: 20020101, end: 20050301
  3. MORPHINE [Concomitant]
     Indication: BACK PAIN
     Dosage: 320 MG, QD
  4. AMITRIPTYLINE [Concomitant]
     Dosage: 10 MG, QD
  5. CELEXA [Concomitant]
     Dosage: 20 MG, QD
  6. ESTROGEN NOS [Concomitant]
     Dosage: 0.625 MG, QD
  7. PRILOSEC [Concomitant]
     Dosage: 20 MG, QD
  8. FERROUS GLUCONATE [Concomitant]
     Dosage: 300 MG, QD
  9. ATIVAN [Concomitant]
     Dosage: 0.5 MG Q6H PRN
  10. FLOVENT [Concomitant]
     Dosage: 125 PRN
  11. VENTOLIN [Concomitant]
     Dosage: 100 UG, PRN
  12. RHINOCORT (BECLOMETASONE DIPROPIONATE) [Concomitant]
     Dosage: 64 UG, PRN
  13. NOVOHYDRAZIDE [Concomitant]
     Dosage: 25 MG, QD
  14. DILAUDID [Concomitant]
     Dosage: 2-3 ML PRN

REACTIONS (21)
  - ABDOMINAL PAIN [None]
  - BACTERIAL INFECTION [None]
  - BONE DEBRIDEMENT [None]
  - BONE DENSITY DECREASED [None]
  - BONE DISORDER [None]
  - DENTAL FISTULA [None]
  - EXCESSIVE GRANULATION TISSUE [None]
  - FUNGAL INFECTION [None]
  - IMPAIRED HEALING [None]
  - INFLAMMATION [None]
  - MOUTH ULCERATION [None]
  - OSTEOMYELITIS [None]
  - OSTEONECROSIS [None]
  - OSTEOTOMY [None]
  - PAIN [None]
  - PERIODONTAL DESTRUCTION [None]
  - PRIMARY SEQUESTRUM [None]
  - PURULENCE [None]
  - TOOTH DISORDER [None]
  - TOOTH EXTRACTION [None]
  - TOOTHACHE [None]
